FAERS Safety Report 16988071 (Version 2)
Quarter: 2019Q4

REPORT INFORMATION
  Report Type: Spontaneous
  Country: US (occurrence: US)
  Receive Date: 20191104
  Receipt Date: 20191129
  Transmission Date: 20200122
  Serious: No
  Sender: FDA-Public Use
  Company Number: US-SHIRE-US201937154

PATIENT
  Sex: Male

DRUGS (1)
  1. XIIDRA [Suspect]
     Active Substance: LIFITEGRAST
     Indication: DRY EYE
     Dosage: 5 PERCENT
     Route: 047

REACTIONS (4)
  - Eye irritation [Unknown]
  - Lacrimation increased [Unknown]
  - Adverse event [Unknown]
  - Eyelid margin crusting [Unknown]
